FAERS Safety Report 24711294 (Version 1)
Quarter: 2024Q4

REPORT INFORMATION
  Report Type: Spontaneous
  Country: SG (occurrence: SG)
  Receive Date: 20241209
  Receipt Date: 20241209
  Transmission Date: 20250115
  Serious: Yes (Other)
  Sender: ROCHE
  Company Number: SG-ROCHE-10000149037

PATIENT
  Age: 40 Year
  Sex: Female

DRUGS (1)
  1. PHESGO [Suspect]
     Active Substance: HYALURONIDASE-ZZXF\PERTUZUMAB\TRASTUZUMAB
     Indication: Breast cancer
     Route: 065

REACTIONS (1)
  - Surgery [Unknown]
